FAERS Safety Report 8407864-5 (Version None)
Quarter: 2012Q2

REPORT INFORMATION
  Report Type: 
  Country: None (occurrence: None)
  Receive Date: 20120604
  Receipt Date: 20120525
  Transmission Date: 20120825
  Serious: Yes (Other)
  Sender: FDA-Public Use
  Company Number: JP-VERTEX PHARMACEUTICALS INC.-AE-2012-007738

PATIENT
  Age: 45 Year
  Sex: Male

DRUGS (6)
  1. TELAVIC (TELAPREVIR) [Suspect]
     Indication: HEPATITIS C
     Route: 048
     Dates: start: 20120514, end: 20120520
  2. LOXOPROFEN [Concomitant]
     Route: 048
     Dates: start: 20120514, end: 20120522
  3. REBETOL [Concomitant]
     Route: 048
     Dates: start: 20120514, end: 20120520
  4. LANSOPRAZOLE [Concomitant]
     Route: 048
     Dates: start: 20120514, end: 20120522
  5. PEG-INTRON [Concomitant]
     Route: 051
     Dates: start: 20120514, end: 20120514
  6. URSO 250 [Concomitant]
     Route: 048

REACTIONS (2)
  - DECREASED APPETITE [None]
  - NAUSEA [None]
